FAERS Safety Report 18690486 (Version 1)
Quarter: 2020Q4

REPORT INFORMATION
  Report Type: Spontaneous
  Country: IN (occurrence: IN)
  Receive Date: 20201231
  Receipt Date: 20201231
  Transmission Date: 20210114
  Serious: Yes (Other)
  Sender: FDA-Public Use
  Company Number: IN-BAXTER-2020BAX026431

PATIENT
  Age: 5 Year
  Sex: Female
  Weight: 15 kg

DRUGS (13)
  1. DEXTED (DEXMEDETOMIDINE) [Suspect]
     Active Substance: DEXMEDETOMIDINE
     Indication: PRODUCT USED FOR UNKNOWN INDICATION
     Dosage: OVER 10MIN
     Route: 040
  2. LIGNOCAINE [Concomitant]
     Active Substance: LIDOCAINE HYDROCHLORIDE
     Route: 065
  3. SEVOFLURANE LIQUID FOR INHALATION [Suspect]
     Active Substance: SEVOFLURANE
     Indication: INDUCTION OF ANAESTHESIA
     Dosage: 2%-4% WITH 100% OXYGEN
     Route: 055
  4. DEXTED (DEXMEDETOMIDINE) [Suspect]
     Active Substance: DEXMEDETOMIDINE
     Dosage: INFUSION
     Route: 041
  5. ATRACURIUM [Concomitant]
     Active Substance: ATRACURIUM
     Indication: PRODUCT USED FOR UNKNOWN INDICATION
     Route: 065
  6. ADRENALINE [Concomitant]
     Active Substance: EPINEPHRINE
     Indication: PREOPERATIVE CARE
     Route: 065
  7. OXYGEN. [Concomitant]
     Active Substance: OXYGEN
     Indication: PRODUCT USED FOR UNKNOWN INDICATION
     Route: 055
  8. GLYCOPYRROLATE. [Concomitant]
     Active Substance: GLYCOPYRROLATE
     Indication: PREOPERATIVE CARE
     Route: 042
  9. LIGNOCAINE [Concomitant]
     Active Substance: LIDOCAINE HYDROCHLORIDE
     Indication: PREOPERATIVE CARE
     Route: 065
  10. DEXAMETHASONE. [Concomitant]
     Active Substance: DEXAMETHASONE
     Indication: PREOPERATIVE CARE
     Route: 042
  11. XYLOMETAZOLINE [Concomitant]
     Active Substance: XYLOMETAZOLINE
     Indication: NASAL DECONGESTION THERAPY
     Dosage: 1-2 DROPS
     Route: 045
  12. FENTANYL. [Concomitant]
     Active Substance: FENTANYL
     Indication: PRODUCT USED FOR UNKNOWN INDICATION
     Route: 065
  13. KETAMINE [Concomitant]
     Active Substance: KETAMINE
     Indication: PREOPERATIVE CARE
     Route: 042

REACTIONS (2)
  - Use of accessory respiratory muscles [Unknown]
  - Airway complication of anaesthesia [Unknown]
